FAERS Safety Report 10162227 (Version 2)
Quarter: 2014Q3

REPORT INFORMATION
  Report Type: Spontaneous
  Country: US (occurrence: US)
  Receive Date: 20140509
  Receipt Date: 20140822
  Transmission Date: 20150326
  Serious: Yes (Hospitalization)
  Sender: FDA-Public Use
  Company Number: US-BAYER-2014-065943

PATIENT
  Age: 26 Year
  Sex: Female
  Weight: 120.18 kg

DRUGS (2)
  1. YAZ [Suspect]
     Active Substance: DROSPIRENONE\ETHINYL ESTRADIOL
     Dosage: UNK
     Dates: start: 2001, end: 2008
  2. OCELLA [Suspect]
     Active Substance: DROSPIRENONE\ETHINYL ESTRADIOL
     Dosage: UNK
     Dates: start: 2001, end: 2008

REACTIONS (4)
  - Retinal vascular thrombosis [None]
  - Macular degeneration [None]
  - Visual impairment [None]
  - Injury [None]

NARRATIVE: CASE EVENT DATE: 200711
